FAERS Safety Report 4627739-7 (Version None)
Quarter: 2005Q2

REPORT INFORMATION
  Report Type: 
  Country: None (occurrence: None)
  Receive Date: 20050401
  Receipt Date: 20050322
  Transmission Date: 20051028
  Serious: Yes (Hospitalization)
  Sender: FDA-Public Use
  Company Number: 141650USA

PATIENT
  Age: 14 Year
  Sex: Male

DRUGS (2)
  1. PIMOZIDE [Suspect]
     Dosage: 2 MILLIGRAM ORAL
     Route: 048
     Dates: start: 20050305, end: 20050307
  2. FLUVOXAMINE MALEATE [Suspect]
     Dates: start: 20050228, end: 20050304

REACTIONS (2)
  - PARKINSONISM [None]
  - SOMNOLENCE [None]
